FAERS Safety Report 22236637 (Version 1)
Quarter: 2023Q2

REPORT INFORMATION
  Report Type: Spontaneous
  Country: None (occurrence: US)
  Receive Date: 20230420
  Receipt Date: 20230420
  Transmission Date: 20230721
  Serious: Yes (Other)
  Sender: FDA-Public Use
  Company Number: US-STI Pharma LLC-2140627

PATIENT
  Age: 72 Year
  Sex: Female

DRUGS (29)
  1. ETHAMBUTOL HYDROCHLORIDE [Suspect]
     Active Substance: ETHAMBUTOL HYDROCHLORIDE
     Route: 048
  2. ALLEGRA [Concomitant]
     Active Substance: FEXOFENADINE HYDROCHLORIDE
  3. AIMOVIG [Concomitant]
     Active Substance: ERENUMAB-AOOE
  4. BACLOFEN [Concomitant]
     Active Substance: BACLOFEN
  5. SYMBICORT [Concomitant]
     Active Substance: BUDESONIDE\FORMOTEROL FUMARATE DIHYDRATE
  6. ELMIRON [Concomitant]
     Active Substance: PENTOSAN POLYSULFATE SODIUM
  7. FLUTICASONE [Concomitant]
     Active Substance: FLUTICASONE
  8. HYDROCODONE [Concomitant]
     Active Substance: HYDROCODONE
  9. GABAPENTIN [Concomitant]
     Active Substance: GABAPENTIN
  10. LEVOTHYROXINE [Concomitant]
     Active Substance: LEVOTHYROXINE
  11. NURTEC ODT [Concomitant]
     Active Substance: RIMEGEPANT SULFATE
  12. SINGULAIR [Concomitant]
     Active Substance: MONTELUKAST SODIUM
  13. ONDANSETRON [Concomitant]
     Active Substance: ONDANSETRON
  14. PROAIR HFA [Concomitant]
     Active Substance: ALBUTEROL SULFATE
  15. PROPRANOLOL [Concomitant]
     Active Substance: PROPRANOLOL HYDROCHLORIDE
  16. VESICARE [Concomitant]
     Active Substance: SOLIFENACIN SUCCINATE
  17. ACIDOPHILUS [Concomitant]
     Active Substance: LACTOBACILLUS ACIDOPHILUS
  18. BEETROOT [Concomitant]
  19. COENZYME Q10 [Concomitant]
     Active Substance: DIETARY SUPPLEMENT\UBIDECARENONE
  20. CRANBERRY [Concomitant]
     Active Substance: CRANBERRY
  21. VITAMINS [Concomitant]
     Active Substance: VITAMINS
  22. Ginkobiloba [Concomitant]
  23. glucosamine?chondroitin [Concomitant]
  24. VITAMIN C [Concomitant]
     Active Substance: ASCORBIC ACID
  25. VITAMIN D [Concomitant]
     Active Substance: VITAMIN D NOS
  26. ZINC [Concomitant]
     Active Substance: ZINC
  27. MELATONIN [Concomitant]
     Active Substance: MELATONIN
  28. NUZYRA [Concomitant]
     Active Substance: OMADACYCLINE
     Route: 048
     Dates: start: 20230130
  29. AZITHROMYCIN [Concomitant]
     Active Substance: AZITHROMYCIN
     Dates: start: 20230130

REACTIONS (2)
  - Tinnitus [Unknown]
  - Deafness [Unknown]
